FAERS Safety Report 10374213 (Version 4)
Quarter: 2014Q3

REPORT INFORMATION
  Report Type: Report from Study
  Country: CA (occurrence: CA)
  Receive Date: 20140811
  Receipt Date: 20140925
  Transmission Date: 20150326
  Serious: Yes (Hospitalization)
  Sender: FDA-Public Use
  Company Number: CA-ROCHE-1446932

PATIENT
  Sex: Female

DRUGS (10)
  1. HERCEPTIN [Suspect]
     Active Substance: TRASTUZUMAB
     Indication: PRODUCT USED FOR UNKNOWN INDICATION
     Route: 065
     Dates: start: 20140201, end: 20140501
  2. MONOCOR [Concomitant]
     Active Substance: BISOPROLOL FUMARATE
  3. COVERSYL [Concomitant]
     Active Substance: PERINDOPRIL
  4. ACTONEL [Concomitant]
     Active Substance: RISEDRONATE SODIUM
  5. PANTOLOC [Concomitant]
     Active Substance: PANTOPRAZOLE SODIUM
  6. KADCYLA [Suspect]
     Active Substance: ADO-TRASTUZUMAB EMTANSINE
     Indication: HER-2 POSITIVE BREAST CANCER
     Route: 065
     Dates: start: 20140201, end: 20140501
  7. DECADRON [Concomitant]
     Active Substance: DEXAMETHASONE
  8. TAXOL [Suspect]
     Active Substance: PACLITAXEL
     Indication: PRODUCT USED FOR UNKNOWN INDICATION
     Route: 065
     Dates: start: 20140301, end: 20140501
  9. KADCYLA [Suspect]
     Active Substance: ADO-TRASTUZUMAB EMTANSINE
     Dosage: 160MG EVERY UNKNOWN
     Route: 065
     Dates: start: 20140812, end: 20140903
  10. DILAUDID [Concomitant]
     Active Substance: HYDROMORPHONE HYDROCHLORIDE

REACTIONS (2)
  - Disease progression [Unknown]
  - Pulmonary oedema [Recovering/Resolving]
